FAERS Safety Report 17254212 (Version 11)
Quarter: 2021Q4

REPORT INFORMATION
  Report Type: Spontaneous
  Country: CZ (occurrence: CZ)
  Receive Date: 20200109
  Receipt Date: 20211129
  Transmission Date: 20220303
  Serious: Yes (Death, Life-Threatening, Hospitalization, Other)
  Sender: FDA-Public Use
  Company Number: CZ-NOVPHSZ-PHHY2019CZ227778

PATIENT
  Age: 60 Year
  Sex: Male

DRUGS (20)
  1. DOXORUBICIN [Suspect]
     Active Substance: DOXORUBICIN
     Indication: Chronic lymphocytic leukaemia
     Dosage: UNK PART OF R-CHOP
  2. DOXORUBICIN [Suspect]
     Active Substance: DOXORUBICIN
     Indication: Richter^s syndrome
     Dosage: UNK
     Dates: start: 2018
  3. BENDAMUSTINE HYDROCHLORIDE [Suspect]
     Active Substance: BENDAMUSTINE HYDROCHLORIDE
     Indication: Chronic lymphocytic leukaemia
     Dosage: 2 CYCLES IN CHEMOIMMUNOTHERAPY REGIMEN
  4. GEMCITABINE [Suspect]
     Active Substance: GEMCITABINE
     Indication: Chronic lymphocytic leukaemia
     Dosage: UNK
     Route: 065
     Dates: start: 2018
  5. GEMCITABINE [Suspect]
     Active Substance: GEMCITABINE
     Indication: Richter^s syndrome
  6. PREDNISOLONE [Suspect]
     Active Substance: PREDNISOLONE
     Indication: Chronic lymphocytic leukaemia
     Dosage: UNK,
  7. PREDNISOLONE [Suspect]
     Active Substance: PREDNISOLONE
     Indication: Richter^s syndrome
     Dosage: UNK, PART OF R-CHOP
  8. CYCLOPHOSPHAMIDE [Suspect]
     Active Substance: CYCLOPHOSPHAMIDE
     Indication: Chronic lymphocytic leukaemia
     Dosage: PART OF FCR REGIMEN, CHEMOIMMUNOTHERAPY REGIMEN AND R-CHOP REGIMEN
  9. CYCLOPHOSPHAMIDE [Suspect]
     Active Substance: CYCLOPHOSPHAMIDE
     Indication: Richter^s syndrome
     Dosage: UNK
     Dates: start: 2018
  10. VINCRISTINE [Suspect]
     Active Substance: VINCRISTINE
     Indication: Chronic lymphocytic leukaemia
     Dosage: UNK, PART OF R-CHOP
  11. VINCRISTINE [Suspect]
     Active Substance: VINCRISTINE
     Indication: Richter^s syndrome
     Dosage: UNK
     Dates: start: 2018
  12. RITUXIMAB [Suspect]
     Active Substance: RITUXIMAB
     Indication: Chronic lymphocytic leukaemia
     Dosage: PART OF FCR REGIMEN, CHEMOIMMUNOTHERAPY REGIMEN AND R-CHOP REGIMEN
  13. RITUXIMAB [Suspect]
     Active Substance: RITUXIMAB
     Indication: Richter^s syndrome
     Dosage: UNK
     Dates: start: 2018
  14. DEXAMETHASONE [Suspect]
     Active Substance: DEXAMETHASONE
     Indication: Chronic lymphocytic leukaemia
     Dosage: PART OF CHEMOIMMUNOTHERAPY REGIMEN
     Dates: start: 2018
  15. DEXAMETHASONE [Suspect]
     Active Substance: DEXAMETHASONE
     Indication: Richter^s syndrome
  16. FLUDARABINE [Suspect]
     Active Substance: FLUDARABINE PHOSPHATE
     Indication: Chronic lymphocytic leukaemia
     Dosage: PART OF FCR REGIMEN
     Route: 065
  17. PREDNISONE [Suspect]
     Active Substance: PREDNISONE
     Indication: Richter^s syndrome
     Dosage: UNK, CYCLE R-CHOP
     Dates: start: 2018
  18. PREDNISONE [Suspect]
     Active Substance: PREDNISONE
     Dosage: UNK
  19. IBRUTINIB [Concomitant]
     Active Substance: IBRUTINIB
     Indication: Chronic lymphocytic leukaemia
     Dosage: 420 MILLIGRAM, QD
     Route: 048
     Dates: start: 201706
  20. VENETOCLAX [Concomitant]
     Active Substance: VENETOCLAX
     Indication: Chronic lymphocytic leukaemia
     Dosage: 20 MG, QD INITIAL DOSE, FOLLOWED BY GRADUAL DOSE ESCALATION ACCORDING TO A STANDARD SCHEDU
     Route: 048

REACTIONS (16)
  - Condition aggravated [Fatal]
  - Thrombocytopenia [Fatal]
  - Richter^s syndrome [Fatal]
  - Drug ineffective [Fatal]
  - Neutropenic sepsis [Unknown]
  - Bone marrow failure [Unknown]
  - Malignant neoplasm progression [Recovering/Resolving]
  - Chronic lymphocytic leukaemia transformation [Unknown]
  - Treatment failure [Unknown]
  - Chronic lymphocytic leukaemia recurrent [Unknown]
  - Chronic lymphocytic leukaemia refractory [Unknown]
  - Abdominal lymphadenopathy [Recovering/Resolving]
  - Chronic lymphocytic leukaemia [Recovering/Resolving]
  - Night sweats [Unknown]
  - Product use in unapproved indication [Unknown]
  - Off label use [Unknown]

NARRATIVE: CASE EVENT DATE: 20111001
